FAERS Safety Report 18602352 (Version 38)
Quarter: 2023Q2

REPORT INFORMATION
  Report Type: Spontaneous
  Country: CA (occurrence: CA)
  Receive Date: 20201211
  Receipt Date: 20230614
  Transmission Date: 20230722
  Serious: Yes (Hospitalization, Disabling, Other)
  Sender: FDA-Public Use
  Company Number: CA-CELLTRION INC.-2020CA027770

PATIENT

DRUGS (35)
  1. INFLECTRA [Suspect]
     Active Substance: INFLIXIMAB-DYYB
     Indication: Crohn^s disease
     Dosage: 5 MG/KG, 0, 2, 6 THEN EVERY 8 WEEKS
     Route: 042
     Dates: start: 20200819
  2. INFLECTRA [Suspect]
     Active Substance: INFLIXIMAB-DYYB
     Dosage: 5 MG/KG, 0, 2, 6 THEN EVERY 8 WEEKS
     Route: 041
     Dates: start: 20200819, end: 20201209
  3. INFLECTRA [Suspect]
     Active Substance: INFLIXIMAB-DYYB
     Dosage: 5 MG/KG, 0, 2, 6 THEN EVERY 8 WEEKS
     Route: 042
     Dates: start: 20200819
  4. INFLECTRA [Suspect]
     Active Substance: INFLIXIMAB-DYYB
     Dosage: 5 MG/KG, 0, 2, 6 THEN EVERY 8 WEEKS
     Route: 042
     Dates: start: 20200910
  5. INFLECTRA [Suspect]
     Active Substance: INFLIXIMAB-DYYB
     Dosage: 5 MG/KG, 0, 2, 6 THEN EVERY 8 WEEKS
     Route: 042
     Dates: start: 20201017
  6. INFLECTRA [Suspect]
     Active Substance: INFLIXIMAB-DYYB
     Dosage: 5 MG/KG, 0, 2, 6 THEN EVERY 8 WEEKS
     Route: 042
     Dates: start: 20201209
  7. INFLECTRA [Suspect]
     Active Substance: INFLIXIMAB-DYYB
     Dosage: 10 MG/KG, 0, 2, 6 THEN EVERY 8 WEEKS
     Route: 042
     Dates: start: 20210202, end: 20210615
  8. INFLECTRA [Suspect]
     Active Substance: INFLIXIMAB-DYYB
     Dosage: 10 MG/KG, 0, 2, 6 THEN EVERY 8 WEEKS
     Route: 042
     Dates: start: 20210202
  9. INFLECTRA [Suspect]
     Active Substance: INFLIXIMAB-DYYB
     Dosage: 10 MG/KG, 0, 2, 6 THEN EVERY 8 WEEKS
     Route: 042
     Dates: start: 20210202, end: 20210615
  10. INFLECTRA [Suspect]
     Active Substance: INFLIXIMAB-DYYB
     Dosage: 10 MG/KG, 0, 2, 6 THEN EVERY 8 WEEKS
     Route: 042
     Dates: start: 20210413
  11. INFLECTRA [Suspect]
     Active Substance: INFLIXIMAB-DYYB
     Dosage: 10 MG/KG, 0, 2, 6 THEN EVERY 8 WEEKS
     Route: 042
     Dates: start: 20210615
  12. INFLECTRA [Suspect]
     Active Substance: INFLIXIMAB-DYYB
     Dosage: 10 MG/KG, EVERY 6 WEEKS
     Route: 042
     Dates: start: 20210729, end: 20211203
  13. INFLECTRA [Suspect]
     Active Substance: INFLIXIMAB-DYYB
     Dosage: 10 MG/KG, 0, 2, 6 THEN EVERY 8 WEEKS
     Route: 042
     Dates: start: 20210803, end: 20210803
  14. INFLECTRA [Suspect]
     Active Substance: INFLIXIMAB-DYYB
     Dosage: 10 MG/KG, 0, 2, 6 THEN EVERY 8 WEEKS
     Route: 042
     Dates: start: 20210909
  15. INFLECTRA [Suspect]
     Active Substance: INFLIXIMAB-DYYB
     Dosage: 10 MG/KG, EVERY 8 WEEKS
     Route: 042
     Dates: start: 20211020
  16. INFLECTRA [Suspect]
     Active Substance: INFLIXIMAB-DYYB
     Dosage: 800 MG (SUPPOSED TO BE 10 MG/KG, EVERY 8 WEEKS)
     Route: 042
     Dates: start: 20211203
  17. INFLECTRA [Suspect]
     Active Substance: INFLIXIMAB-DYYB
     Dosage: 10 MG/KG, REINDUCTION 0,2,6, THEN Q6WEEKS
     Route: 042
     Dates: start: 20220401
  18. INFLECTRA [Suspect]
     Active Substance: INFLIXIMAB-DYYB
     Dosage: 10 MG/KG, REINDUCTION 0,2,6, THEN Q6WEEKS
     Route: 042
     Dates: start: 20220401, end: 20220727
  19. INFLECTRA [Suspect]
     Active Substance: INFLIXIMAB-DYYB
     Dosage: 10 MG/KG, REINDUCTION 0,2,6, THEN Q6 WEEKS
     Route: 042
     Dates: start: 20220413
  20. INFLECTRA [Suspect]
     Active Substance: INFLIXIMAB-DYYB
     Dosage: 10 MG/KG, REINDUCTION 0,2,6, THEN Q6 WEEKS
     Route: 042
     Dates: start: 20220413
  21. INFLECTRA [Suspect]
     Active Substance: INFLIXIMAB-DYYB
     Dosage: 10 MG/KG, REINDUCTION 0,2,6, THEN Q6 WEEKS
     Route: 042
     Dates: start: 20220413
  22. INFLECTRA [Suspect]
     Active Substance: INFLIXIMAB-DYYB
     Dosage: 10 MG/KG, REINDUCTION 0,2,6, THEN Q6 WEEKS
     Route: 042
     Dates: start: 20220413
  23. INFLECTRA [Suspect]
     Active Substance: INFLIXIMAB-DYYB
     Dosage: 10 MG/KG, REINDUCTION 0,2,6, THEN Q6 WEEKS
     Route: 042
     Dates: start: 20220531
  24. INFLECTRA [Suspect]
     Active Substance: INFLIXIMAB-DYYB
     Dosage: 10 MG/KG, REINDUCTION 0,2,6, THEN Q6 WEEKS
     Route: 042
     Dates: start: 20220727
  25. INFLECTRA [Suspect]
     Active Substance: INFLIXIMAB-DYYB
     Dosage: 10 MG/KG, REINDUCTION 0,2,6, THEN Q6 WEEKS
     Route: 042
     Dates: start: 20230426
  26. INFLECTRA [Suspect]
     Active Substance: INFLIXIMAB-DYYB
     Dosage: 10 MG/KG, REINDUCTION 0,2,6, THEN Q6 WEEKS
     Route: 042
     Dates: start: 20230426
  27. CALCIUM [Concomitant]
     Active Substance: CALCIUM
     Dosage: 1 DF DOSAGE INFORMATION NOT AVAILABLE
     Route: 065
  28. CORTISONE ACETATE [Concomitant]
     Active Substance: CORTISONE ACETATE
     Dosage: UNK
  29. IRON [Concomitant]
     Active Substance: IRON
     Dosage: 1 DF
     Route: 048
  30. IRON [Concomitant]
     Active Substance: IRON
     Dosage: 1 DF, 3X/DAY DOSAGE INFORMATION NOT AVAILABLE
     Route: 048
  31. PREDNISONE [Concomitant]
     Active Substance: PREDNISONE
     Dosage: 1 DF DOSAGE INFORMATION NOT AVAILABLE
     Route: 065
     Dates: start: 20200724
  32. TYLENOL [Concomitant]
     Active Substance: ACETAMINOPHEN
     Indication: Premedication
     Dosage: 1 DF, AS NEEDED
  33. TYLENOL [Concomitant]
     Active Substance: ACETAMINOPHEN
     Dosage: 1 DF DOSAGE INFORMATION NOT AVAILABLE
     Route: 065
  34. TYLENOL [Concomitant]
     Active Substance: ACETAMINOPHEN
     Dosage: 650 MG
     Dates: start: 20220531, end: 20220531
  35. CHOLECALCIFEROL [Concomitant]
     Active Substance: CHOLECALCIFEROL
     Dosage: 1 DF DOSAGE INFORMATION NOT AVAILABLE
     Route: 048

REACTIONS (68)
  - Ovarian disorder [Unknown]
  - Groin abscess [Recovered/Resolved]
  - Haemorrhage [Unknown]
  - Angina pectoris [Not Recovered/Not Resolved]
  - Aphasia [Not Recovered/Not Resolved]
  - Malaise [Not Recovered/Not Resolved]
  - Drug level decreased [Unknown]
  - Off label use [Unknown]
  - Off label use [Unknown]
  - Intentional product use issue [Unknown]
  - Off label use [Unknown]
  - Inappropriate schedule of product administration [Unknown]
  - Sleep disorder due to general medical condition, insomnia type [Unknown]
  - Throat irritation [Unknown]
  - Seasonal allergy [Unknown]
  - Rash [Recovered/Resolved]
  - Skin warm [Recovered/Resolved]
  - Dyspnoea [Not Recovered/Not Resolved]
  - Palpitations [Recovered/Resolved]
  - Chest discomfort [Unknown]
  - Hypoaesthesia [Unknown]
  - Burning sensation [Unknown]
  - Ovarian cyst [Unknown]
  - Pain [Unknown]
  - Nightmare [Not Recovered/Not Resolved]
  - Memory impairment [Unknown]
  - Flashback [Not Recovered/Not Resolved]
  - Acne [Recovering/Resolving]
  - Abdominal pain lower [Recovering/Resolving]
  - Adnexa uteri pain [Recovering/Resolving]
  - Pollakiuria [Unknown]
  - Fungal infection [Not Recovered/Not Resolved]
  - Pelvic pain [Not Recovered/Not Resolved]
  - Blood pressure systolic increased [Unknown]
  - Skin plaque [Recovered/Resolved]
  - Pruritus [Unknown]
  - Alopecia [Unknown]
  - Arthralgia [Recovering/Resolving]
  - Weight fluctuation [Unknown]
  - Abdominal pain lower [Not Recovered/Not Resolved]
  - Oral herpes [Recovered/Resolved]
  - Headache [Not Recovered/Not Resolved]
  - Pharyngitis [Not Recovered/Not Resolved]
  - Cough [Not Recovered/Not Resolved]
  - Lymphadenopathy [Not Recovered/Not Resolved]
  - Dysphagia [Not Recovered/Not Resolved]
  - Dizziness [Not Recovered/Not Resolved]
  - Vertigo [Unknown]
  - Blood pressure abnormal [Unknown]
  - Tonsillitis [Unknown]
  - Ear infection [Unknown]
  - Fatigue [Unknown]
  - Infection [Recovered/Resolved]
  - Discharge [Unknown]
  - Oropharyngeal pain [Not Recovered/Not Resolved]
  - Nasopharyngitis [Not Recovered/Not Resolved]
  - Condition aggravated [Not Recovered/Not Resolved]
  - Rash macular [Not Recovered/Not Resolved]
  - Nausea [Recovered/Resolved]
  - Anaemia [Not Recovered/Not Resolved]
  - Maternal exposure during pregnancy [Unknown]
  - Anxiety [Not Recovered/Not Resolved]
  - Crying [Unknown]
  - Generalised oedema [Not Recovered/Not Resolved]
  - Peripheral swelling [Not Recovered/Not Resolved]
  - Abdominal distension [Not Recovered/Not Resolved]
  - Movement disorder [Recovering/Resolving]
  - Inflammation [Not Recovered/Not Resolved]

NARRATIVE: CASE EVENT DATE: 20200101
